FAERS Safety Report 8862485 (Version 2)
Quarter: 2012Q4

REPORT INFORMATION
  Report Type: 
  Country: US (occurrence: US)
  Receive Date: 20121026
  Receipt Date: 20121031
  Transmission Date: 20130627
  Serious: Yes (Life-Threatening, Hospitalization)
  Sender: FDA-Public Use
  Company Number: PHEH2012US020878

PATIENT
  Age: 59 Year
  Sex: Female

DRUGS (13)
  1. GILENYA [Suspect]
     Indication: MULTIPLE SCLEROSIS
     Dosage: 0.5 mg, QD
     Route: 048
     Dates: start: 201110
  2. BACLOFEN [Suspect]
     Dosage: 10 mg, TID
  3. CRESTOR [Concomitant]
     Dosage: 10 mg, QD
     Route: 048
  4. ENABLEX [Concomitant]
     Dosage: 7.5 mg, QD
     Route: 048
  5. ERGOCALCIFEROL [Concomitant]
     Dosage: 1 DF, every week
  6. FUROSEMIDE [Concomitant]
     Route: 048
  7. GLYBURIDE [Concomitant]
     Dosage: 5 mg, BID
     Route: 048
  8. LEVOTHYROXINE [Concomitant]
     Dosage: 75 ug, QD
     Route: 048
  9. LISINOPRIL [Concomitant]
     Dosage: 10 mg, QD
     Route: 048
  10. NASONEX [Concomitant]
  11. NOVOLOG [Concomitant]
     Route: 058
  12. VENLAFAXIN [Concomitant]
     Dosage: 150 mg, BID
  13. VIVELLE-DOT [Concomitant]
     Route: 062

REACTIONS (2)
  - Convulsion [Not Recovered/Not Resolved]
  - Respiratory arrest [Not Recovered/Not Resolved]
